FAERS Safety Report 9004523 (Version 1)
Quarter: 2013Q1

REPORT INFORMATION
  Report Type: Spontaneous
  Country: US (occurrence: US)
  Receive Date: 20130108
  Receipt Date: 20130108
  Transmission Date: 20140127
  Serious: Yes (Other)
  Sender: FDA-Public Use
  Company Number: US-009507513-1301USA002566

PATIENT
  Age: 25 Year
  Sex: Male

DRUGS (8)
  1. SINGULAIR [Suspect]
     Indication: ANXIETY
     Route: 048
  2. SINGULAIR [Suspect]
     Indication: ASTHMA
  3. SINGULAIR [Suspect]
     Indication: RHINITIS ALLERGIC
  4. NASACORT [Suspect]
     Route: 045
  5. BRICANYL [Suspect]
     Route: 055
  6. SYMBICORT [Suspect]
     Dosage: 1 INHALATION BID RESPIRATORY (INHALATION)
     Route: 055
  7. XYZAL [Concomitant]
  8. XANAX [Concomitant]

REACTIONS (3)
  - Agitation [Unknown]
  - Aggression [Unknown]
  - Insomnia [Unknown]
